FAERS Safety Report 6061794-5 (Version None)
Quarter: 2009Q1

REPORT INFORMATION
  Report Type: 
  Country: None (occurrence: None)
  Receive Date: 20090202
  Receipt Date: 20090121
  Transmission Date: 20090719
  Serious: Yes (Hospitalization)
  Sender: FDA-Public Use
  Company Number: HK-ROCHE-566748

PATIENT
  Age: 63 Year
  Sex: Female

DRUGS (4)
  1. RIBAVIRIN [Suspect]
     Dosage: DOSAGE REGIMEN REPORTED AS: DAILY.
     Route: 048
     Dates: start: 20080327, end: 20080512
  2. RIBAVIRIN [Suspect]
     Route: 048
  3. ANTIDIABETIC DRUG NOS [Suspect]
     Indication: DIABETES MELLITUS
     Dosage: DRUG REPORTED AS: UNKNOWN MEDICINE FOR DIABETES MELLITUS.
     Route: 048
     Dates: end: 20080512
  4. PEGASYS [Concomitant]
     Route: 058
     Dates: start: 20080327

REACTIONS (2)
  - ANOREXIA [None]
  - GASTRITIS [None]
